FAERS Safety Report 7166155-3 (Version None)
Quarter: 2010Q4

REPORT INFORMATION
  Report Type: 
  Country: None (occurrence: None)
  Receive Date: 20101216
  Receipt Date: 20101202
  Transmission Date: 20110411
  Serious: No
  Sender: FDA-Public Use
  Company Number: US-ELI_LILLY_AND_COMPANY-US201007002719

PATIENT
  Sex: Female

DRUGS (1)
  1. FORTEO [Suspect]
     Indication: OSTEOPOROSIS
     Dosage: 20 UG, DAILY (1/D)
     Dates: start: 20100626

REACTIONS (4)
  - CONSTIPATION [None]
  - DYSPLASTIC NAEVUS SYNDROME [None]
  - INJECTION SITE HAEMATOMA [None]
  - MELANOCYTIC NAEVUS [None]
